FAERS Safety Report 10456439 (Version 1)
Quarter: 2014Q3

REPORT INFORMATION
  Report Type: Spontaneous
  Country: US (occurrence: None)
  Receive Date: 20140822
  Receipt Date: 20140822
  Transmission Date: 20150326
  Serious: Yes (Other)
  Sender: FDA-Public Use
  Company Number: 2014SUN00022

PATIENT
  Sex: Female

DRUGS (2)
  1. BACTRIM DS [Suspect]
     Active Substance: SULFAMETHOXAZOLE\TRIMETHOPRIM
     Indication: URINARY TRACT INFECTION
  2. CIPROFLOXACIN (CIPROFLOXACIN) [Suspect]
     Active Substance: CIPROFLOXACIN
     Indication: URINARY TRACT INFECTION

REACTIONS (1)
  - Convulsion [None]
